FAERS Safety Report 11646792 (Version 2)
Quarter: 2016Q2

REPORT INFORMATION
  Report Type: Spontaneous
  Country: US (occurrence: US)
  Receive Date: 20151020
  Receipt Date: 20160429
  Transmission Date: 20160815
  Serious: No
  Sender: FDA-Public Use
  Company Number: US-ROCHE-1620458

PATIENT
  Sex: Male
  Weight: 98.97 kg

DRUGS (1)
  1. ESBRIET [Suspect]
     Active Substance: PIRFENIDONE
     Indication: IDIOPATHIC PULMONARY FIBROSIS
     Dosage: 2403 MG DAILY; 3 CAPS PO TID
     Route: 048
     Dates: start: 20150423

REACTIONS (4)
  - Productive cough [Unknown]
  - Sinus congestion [Unknown]
  - Constipation [Unknown]
  - Sinusitis [Unknown]
